FAERS Safety Report 9089771 (Version 1)
Quarter: 2013Q1

REPORT INFORMATION
  Report Type: Spontaneous
  Country: CO (occurrence: CO)
  Receive Date: 20130201
  Receipt Date: 20130201
  Transmission Date: 20140127
  Serious: Yes (Hospitalization, Other)
  Sender: FDA-Public Use
  Company Number: CO-PFIZER INC-2011044146

PATIENT
  Age: 77 Year
  Sex: Female

DRUGS (4)
  1. LYRICA [Suspect]
     Indication: ARTHRITIS
     Dosage: 75 MG, 1X/DAY
     Route: 048
     Dates: start: 2009, end: 2011
  2. LYRICA [Suspect]
     Indication: NEURALGIA
  3. CALCITRIOL [Concomitant]
     Indication: SUPPLEMENTATION THERAPY
     Route: 048
  4. CALCIUM CARBONATE/COLECALCIFEROL [Concomitant]

REACTIONS (6)
  - Drug dependence [Not Recovered/Not Resolved]
  - Tendon rupture [Recovered/Resolved]
  - Thrombophlebitis [Not Recovered/Not Resolved]
  - Hypertension [Not Recovered/Not Resolved]
  - Dizziness [Unknown]
  - Insomnia [Not Recovered/Not Resolved]
